FAERS Safety Report 14967245 (Version 1)
Quarter: 2018Q2

REPORT INFORMATION
  Report Type: Report from Study
  Country: CA (occurrence: CA)
  Receive Date: 20180604
  Receipt Date: 20180604
  Transmission Date: 20180711
  Serious: Yes (Death, Life-Threatening)
  Sender: FDA-Public Use
  Company Number: CA-CHEPLA-C20170369

PATIENT

DRUGS (1)
  1. ALL-TRANS RETINOIC ACID (ATRA) [Suspect]
     Active Substance: TRETINOIN
     Indication: ACUTE PROMYELOCYTIC LEUKAEMIA
     Dosage: 25 MG/M^2/DAY OR 45 MG/M^2/DAY

REACTIONS (9)
  - Central nervous system haemorrhage [Fatal]
  - Respiratory failure [Fatal]
  - Bacterial infection [Fatal]
  - Acute promyelocytic leukaemia differentiation syndrome [Fatal]
  - Renal failure [Fatal]
  - Leukaemia recurrent [Unknown]
  - Pulmonary haemorrhage [Fatal]
  - Thrombosis [Fatal]
  - Multiple organ dysfunction syndrome [Fatal]
